FAERS Safety Report 6529079-8 (Version None)
Quarter: 2010Q1

REPORT INFORMATION
  Report Type: 
  Country: None (occurrence: None)
  Receive Date: 20100106
  Receipt Date: 20100106
  Transmission Date: 20100710
  Serious: Yes (Hospitalization, Other)
  Sender: FDA-Public Use
  Company Number: US-ASTRAZENECA-2007UW26725

PATIENT
  Age: 13641 Day
  Sex: Female
  Weight: 96.2 kg

DRUGS (32)
  1. SEROQUEL [Suspect]
     Indication: BIPOLAR DISORDER
     Dosage: 25-400 MG
     Route: 048
     Dates: start: 19990101
  2. SEROQUEL [Suspect]
     Indication: DEPRESSION
     Dosage: 25-400 MG
     Route: 048
     Dates: start: 19990101
  3. SEROQUEL [Suspect]
     Indication: ANXIETY
     Dosage: 25-400 MG
     Route: 048
     Dates: start: 19990101
  4. SEROQUEL [Suspect]
     Dosage: 25-300 MG
     Route: 048
     Dates: start: 20020101, end: 20030101
  5. SEROQUEL [Suspect]
     Dosage: 25-300 MG
     Route: 048
     Dates: start: 20020101, end: 20030101
  6. SEROQUEL [Suspect]
     Dosage: 25-300 MG
     Route: 048
     Dates: start: 20020101, end: 20030101
  7. ABILIFY [Concomitant]
     Dates: start: 20060330, end: 20060330
  8. PREVACID [Concomitant]
  9. MEVACOR [Concomitant]
  10. METFORMIN HCL [Concomitant]
  11. VALIUM [Concomitant]
  12. LISINOPRIL [Concomitant]
  13. PAROXETINE HYDROCHLORIDE [Concomitant]
  14. PROTONIX [Concomitant]
  15. PREMARIN [Concomitant]
  16. NORVASC [Concomitant]
  17. CLONIDINE [Concomitant]
  18. HYDROCODONE BITARTRATE [Concomitant]
  19. RANITIDINE HYDROCHLORIDE [Concomitant]
  20. ULTRAM [Concomitant]
  21. TYLENOL (CAPLET) [Concomitant]
  22. ACTOS [Concomitant]
  23. CYMBALTA [Concomitant]
  24. PAXIL CR [Concomitant]
  25. VISTARIL [Concomitant]
  26. LEVSINEX [Concomitant]
  27. SERZONE [Concomitant]
  28. WELLBUTRIN XL [Concomitant]
  29. PRILOSEC [Concomitant]
  30. MAXZIDE [Concomitant]
  31. DIFLUCAN [Concomitant]
  32. LAMISIL [Concomitant]

REACTIONS (19)
  - ANGINA PECTORIS [None]
  - CATARACT [None]
  - CORONARY ARTERY DISEASE [None]
  - DEHYDRATION [None]
  - DIABETES MELLITUS [None]
  - DIABETIC EYE DISEASE [None]
  - DIABETIC NEUROPATHY [None]
  - DIABETIC RETINOPATHY [None]
  - HYPERTENSION [None]
  - JOINT INJURY [None]
  - MENISCUS LESION [None]
  - NEUROPATHY PERIPHERAL [None]
  - PALPITATIONS [None]
  - PANIC ATTACK [None]
  - POST-TRAUMATIC STRESS DISORDER [None]
  - RENAL FAILURE ACUTE [None]
  - SEXUAL DYSFUNCTION [None]
  - SYNOVITIS [None]
  - TYPE 2 DIABETES MELLITUS [None]
